FAERS Safety Report 4678231-5 (Version None)
Quarter: 2005Q2

REPORT INFORMATION
  Report Type: 
  Country: None (occurrence: None)
  Receive Date: 20050527
  Receipt Date: 20050513
  Transmission Date: 20051028
  Serious: Yes (Life-Threatening, Other)
  Sender: FDA-Public Use
  Company Number: 2005-BP-08080R0

PATIENT
  Age: 66 Year
  Sex: Male

DRUGS (13)
  1. LEUCOVORIN CALCIUM [Suspect]
     Indication: RECTAL CANCER
     Dosage: 75 MG/DAY/CYCLE (NR), PO
     Route: 048
     Dates: start: 20041214, end: 20050110
  2. LEUCOVORIN CALCIUM [Suspect]
     Indication: RECTAL CANCER
     Dosage: 75 MG/DAY/CYCLE (NR), PO
     Route: 048
     Dates: start: 20050118, end: 20050208
  3. LEUCOVORIN CALCIUM [Suspect]
     Indication: RECTAL CANCER
     Dosage: 75 MG/DAY/CYCLE (NR), PO
     Route: 048
     Dates: start: 20050215
  4. UFT [Suspect]
     Indication: RECTAL CANCER
     Dosage: 1.5 GM/DAY/CYCLE (NR), PO
     Route: 048
     Dates: start: 20041214, end: 20050110
  5. UFT [Suspect]
     Indication: RECTAL CANCER
     Dosage: 1.5 GM/DAY/CYCLE (NR), PO
     Route: 048
     Dates: start: 20050118, end: 20050208
  6. UFT [Suspect]
     Indication: RECTAL CANCER
     Dosage: 1.5 GM/DAY/CYCLE (NR), PO
     Route: 048
     Dates: start: 20050215
  7. MUCODYNE(CARBOCISTEINE) [Concomitant]
  8. AMOBAN(ZOPICLONE) [Concomitant]
  9. PREDONINE (PREDNISOLONE) [Concomitant]
  10. SOLETON (ZALTOPROFEN) [Concomitant]
  11. FAMOTIDINE [Concomitant]
  12. BIOFERMIN (BIOFERMIN) [Concomitant]
  13. MAGNESIUM OXIDE [Concomitant]

REACTIONS (3)
  - ALANINE AMINOTRANSFERASE INCREASED [None]
  - ASPARTATE AMINOTRANSFERASE INCREASED [None]
  - BLOOD POTASSIUM INCREASED [None]
